FAERS Safety Report 6935903-7 (Version None)
Quarter: 2010Q3

REPORT INFORMATION
  Report Type: 
  Country: None (occurrence: None)
  Receive Date: 20100816
  Receipt Date: 20100419
  Transmission Date: 20110219
  Serious: Yes (Hospitalization, Other)
  Sender: FDA-Public Use
  Company Number: US-WYE-H14680910

PATIENT
  Sex: Female

DRUGS (1)
  1. TYGACIL [Suspect]
     Indication: DIVERTICULITIS
     Dosage: 100 MG LOADING DOSE, THEN 50 MG EVERY 12 HOURS, INTRAVENOUS
     Route: 042
     Dates: start: 20100401, end: 20100401

REACTIONS (1)
  - PANCREATITIS [None]
